FAERS Safety Report 8970039 (Version 1)
Quarter: 2012Q4

REPORT INFORMATION
  Report Type: 
  Country: US (occurrence: US)
  Receive Date: 20121218
  Receipt Date: 20121218
  Transmission Date: 20130627
  Serious: Yes (Hospitalization)
  Sender: FDA-Public Use
  Company Number: US-BRISTOL-MYERS SQUIBB COMPANY-16207854

PATIENT
  Age: 12 Year
  Sex: Male
  Weight: 72.11 kg

DRUGS (2)
  1. ABILIFY [Suspect]
     Indication: BIPOLAR DISORDER
     Dosage: 1.5 years ago abilify 2 mg.15mg once daily.then7.5mg.now 30mg
  2. SERTRALINE [Concomitant]
     Indication: ANXIETY

REACTIONS (3)
  - Aggression [Recovered/Resolved]
  - Formication [Unknown]
  - Restlessness [Unknown]
